FAERS Safety Report 23673713 (Version 4)
Quarter: 2024Q3

REPORT INFORMATION
  Report Type: Spontaneous
  Country: US (occurrence: US)
  Receive Date: 20240326
  Receipt Date: 20240902
  Transmission Date: 20241017
  Serious: Yes (Other)
  Sender: BRISTOL MYERS SQUIBB
  Company Number: US-BRISTOL-MYERS SQUIBB COMPANY-2024-045108

PATIENT
  Age: 79 Year
  Sex: Male

DRUGS (46)
  1. REVLIMID [Suspect]
     Active Substance: LENALIDOMIDE
     Indication: Diffuse large B-cell lymphoma
     Dosage: QD FOR 21 DAYS; THEN 7 DAYS OFF
     Route: 048
     Dates: start: 20231213
  2. REVLIMID [Suspect]
     Active Substance: LENALIDOMIDE
     Route: 048
     Dates: start: 20231215
  3. REVLIMID [Suspect]
     Active Substance: LENALIDOMIDE
     Dosage: TAKE 1 CAPSULE BY MOUTH EVERY DAY FOR 21 DAYS THEN 7 DAY BREAK
     Route: 048
     Dates: start: 20231215, end: 202406
  4. REVLIMID [Suspect]
     Active Substance: LENALIDOMIDE
     Dosage: FREQUENCY: 21
  5. ATORVASTATIN [Concomitant]
     Active Substance: ATORVASTATIN
     Indication: Product used for unknown indication
  6. ELIQUIS [Concomitant]
     Active Substance: APIXABAN
     Indication: Product used for unknown indication
  7. FINASTERIDE [Concomitant]
     Active Substance: FINASTERIDE
     Indication: Product used for unknown indication
  8. JARDIANCE [Concomitant]
     Active Substance: EMPAGLIFLOZIN
     Indication: Product used for unknown indication
  9. METOPROLOL SUCCINATE [Concomitant]
     Active Substance: METOPROLOL SUCCINATE
     Indication: Product used for unknown indication
     Dosage: ER
  10. RITUXAN [Concomitant]
     Active Substance: RITUXIMAB
     Indication: Product used for unknown indication
     Dosage: 10ML
  11. PANTOPRAZOLE [Concomitant]
     Active Substance: PANTOPRAZOLE
     Indication: Product used for unknown indication
  12. TORSEMIDE [Concomitant]
     Active Substance: TORSEMIDE
     Indication: Product used for unknown indication
  13. ZETIA [Concomitant]
     Active Substance: EZETIMIBE
     Indication: Product used for unknown indication
  14. ZETIA [Concomitant]
     Active Substance: EZETIMIBE
  15. ALBUTEROL SULFATE [Concomitant]
     Active Substance: ALBUTEROL SULFATE
     Indication: Wheezing
     Dosage: (200 PUFFS) 8.5GM?INHALE 2 PUFFS BY MOUTH INTO THE LUNGS FOUR TIMES DAILY AS NEEDED FOR WHEEZING
     Route: 048
  16. AMOXICILLIN\CLAVULANATE POTASSIUM [Concomitant]
     Active Substance: AMOXICILLIN\CLAVULANATE POTASSIUM
     Dosage: 875-125MG TABLETS?TAKE 1 TABLET BY MOUTH EVERY 12 HOURS FOR 10 DAYS
     Route: 048
  17. AMOXICILLIN [Concomitant]
     Active Substance: AMOXICILLIN
     Dosage: FREQUENCY: TAKE 1 TABLET BY MOUTH THREE TIMES DAILY
     Route: 048
  18. AZITHROMYCIN [Concomitant]
     Active Substance: AZITHROMYCIN
     Dosage: TAKE 1 TABLET BY MOUTH DAILY FOR 5 DAYS
     Route: 048
  19. AZITHROMYCIN [Concomitant]
     Active Substance: AZITHROMYCIN
     Dosage: TAKE 2 TABLETS BY MOUTH FOR 1 DAY THEN TAKE 1 TABLET BY MOUTH DAILY FOR 4 DAYS
     Route: 048
  20. AZITHROMYCIN [Concomitant]
     Active Substance: AZITHROMYCIN
     Dosage: TAKE 1 TABLET BY MOUTH DAILY FOR 5 DAYS
     Route: 048
  21. BENZONATATE [Concomitant]
     Active Substance: BENZONATATE
     Indication: Cough
     Dosage: TAKE 1 CAPSULE BY MOUTH THREE TIMES DAILY FOR 10 DAYS
     Route: 048
  22. BENZONATATE [Concomitant]
     Active Substance: BENZONATATE
     Dosage: STRENGTH: 200 MG; TAKE 1 CAPSULE BY MOUTH THREE TIMES DAILY FOR 10 DAYS
     Route: 048
  23. CEPHALEXIN [Concomitant]
     Active Substance: CEPHALEXIN
     Dosage: TAKE 1 CAPSULE BY MOUTH TWICE DAILY FOR 7 DAYS
     Route: 048
  24. CODEINE\GUAIFENESIN [Concomitant]
     Active Substance: CODEINE\GUAIFENESIN
     Indication: Cough
     Dosage: 10-100MG/5MLSOL?TAKE 5 ML BY MOUTH FOUR TIMES DAILY FOR UP TO 5 DAYS AS NEEDED FOR COUGH
     Route: 048
  25. DOXYCYCLINE HYDROCHLORIDE [Concomitant]
     Active Substance: DOXYCYCLINE HYDROCHLORIDE
     Dosage: TAKE 1 CAPSULE BY MOUTH TWICE DAILY FOR 10 DAYS
     Route: 048
  26. DOXYCYCLINE HYDROCHLORIDE [Concomitant]
     Active Substance: DOXYCYCLINE HYDROCHLORIDE
     Dosage: TAKE 1 CAPSULE BY MOUTH TWICE DAILY FOR 7 DAYS
     Route: 048
  27. ACETAMINOPHEN\HYDROCODONE [Concomitant]
     Active Substance: ACETAMINOPHEN\HYDROCODONE
     Indication: Pain
     Dosage: 5-325 TB, EVERY 6 HOURS AS NEEDED
     Route: 048
  28. IRBESARTAN [Concomitant]
     Active Substance: IRBESARTAN
  29. MOLNUPIRAVIR [Concomitant]
     Active Substance: MOLNUPIRAVIR
     Dosage: TAKE 4 CAPSULES BY MOUTH EVERY 12 HOURS FOR 5 DAYS, C
  30. METHYLPREDNISOLONE [Concomitant]
     Active Substance: METHYLPREDNISOLONE
     Dosage: DOSPAK 21S, FOLLOW PACKAGE DIRECTIONS
  31. OXYCODONE [Concomitant]
     Active Substance: OXYCODONE
     Indication: Pain
     Dosage: IMMEDIATE RELEASE TABS, TAKE 1 TABLET BY MOUTH EVERY 6 HOURS AS NEEDED FOR SEVERE PAIN (FOR PAIN NOT
     Route: 048
  32. PENICILLIN V POTASSIUM [Concomitant]
     Active Substance: PENICILLIN V POTASSIUM
     Dosage: TAKE 1 TABLET BY MOUTH FOUR TIMES DAILY
     Route: 048
  33. PREDNISONE [Concomitant]
     Active Substance: PREDNISONE
     Dosage: TAKE 1 TABLET BY MOUTH DAILY FOR 10 DAYS
     Route: 048
  34. TIZANIDINE [Concomitant]
     Active Substance: TIZANIDINE
     Indication: Muscle spasms
     Dosage: TAKE 1 TABLET (4 MG) BY MOUTH EVERY 8 HOURS FOR UP TO 10 DAYS AS NEEDED FOR MUSCLE SPASMS
     Route: 048
  35. TOBRAMYCIN AND DEXAMETHASONE [Concomitant]
     Active Substance: DEXAMETHASONE\TOBRAMYCIN
     Dosage: PLACE 1 DROP INTO LEFT EYE FOUR TIMES DAILY FOR 7 DAYS?SUSP
  36. TRIAMCINOLONE [Concomitant]
     Active Substance: TRIAMCINOLONE
     Dosage: 80 GM, APPLY TOPICALLY TO THE AFFECTED AREA
     Route: 061
  37. VALGANCICLOVIR [Concomitant]
     Active Substance: VALGANCICLOVIR
     Dosage: TAKE 2 TABLETS BY MOUTH TWICE DAILY
     Route: 048
  38. FISH OIL [Concomitant]
     Active Substance: FISH OIL
  39. VITAMINS NOS [Concomitant]
     Active Substance: VITAMINS
     Dosage: ADULT 50 PLUS TAB
  40. MINERALS\VITAMINS [Concomitant]
     Active Substance: MINERALS\VITAMINS
  41. VITAMIN C [Concomitant]
     Active Substance: ASCORBIC ACID
  42. ERGOCALCIFEROL [Concomitant]
     Active Substance: ERGOCALCIFEROL
     Dosage: HIGH POTENCY
  43. CIPROFLOXACIN [Concomitant]
     Active Substance: CIPROFLOXACIN
     Indication: Product used for unknown indication
     Dosage: TAKE 1 TABLET BY MOUTH EVERY 12 HOURS FOR 7 DAYS
     Route: 048
  44. LAGEVRIO [Concomitant]
     Active Substance: MOLNUPIRAVIR
     Dosage: FREQUENCY: TAKE 4 CAPSULES BY?MOUTH EVERY 12 HOURS FOR 5 DAYS.
     Route: 048
  45. MUPIROCIN [Concomitant]
     Active Substance: MUPIROCIN
     Indication: Wound
     Dosage: FREQUENCY: APPLY TWICE DAILY?TO THE SURGICAL WOUND ON THE LEFT?EAR UNTIL HEALED?MUPIROCIN 2% ONITMEN
  46. VITAMIN B12 [Concomitant]
     Active Substance: CYANOCOBALAMIN
     Dosage: 60S

REACTIONS (4)
  - Thrombocytopenia [Unknown]
  - Cough [Recovering/Resolving]
  - White blood cell disorder [Unknown]
  - White blood cell count decreased [Unknown]

NARRATIVE: CASE EVENT DATE: 20240313
